FAERS Safety Report 9370130 (Version 1)
Quarter: 2013Q2

REPORT INFORMATION
  Report Type: Spontaneous
  Country: IT (occurrence: IT)
  Receive Date: 20130626
  Receipt Date: 20130626
  Transmission Date: 20140414
  Serious: Yes (Death, Other)
  Sender: FDA-Public Use
  Company Number: IT-JNJFOC-20130608931

PATIENT
  Sex: Male

DRUGS (9)
  1. ABCIXIMAB [Suspect]
     Indication: ACUTE CORONARY SYNDROME
     Dosage: BOLUS
     Route: 042
  2. ABCIXIMAB [Suspect]
     Indication: ACUTE CORONARY SYNDROME
     Dosage: INFUSION GROUP
     Route: 042
  3. PLACEBO [Suspect]
     Indication: ACUTE CORONARY SYNDROME
     Route: 042
  4. CLOPIDOGREL [Concomitant]
     Indication: ACUTE CORONARY SYNDROME
     Dosage: CONTROL GROUP
     Route: 048
  5. CLOPIDOGREL [Concomitant]
     Indication: ACUTE CORONARY SYNDROME
     Dosage: PLACEBO GROUP
     Route: 048
  6. CLOPIDOGREL [Concomitant]
     Indication: ACUTE CORONARY SYNDROME
     Route: 048
  7. ASPIRIN [Concomitant]
     Indication: ACUTE CORONARY SYNDROME
     Dosage: 160-325 MG
     Route: 048
  8. ASPIRIN [Concomitant]
     Indication: ACUTE CORONARY SYNDROME
     Route: 042
  9. HEPARIN [Concomitant]
     Indication: ACUTE CORONARY SYNDROME
     Route: 065

REACTIONS (4)
  - Myocardial infarction [Fatal]
  - Haemoglobin decreased [Unknown]
  - Platelet count decreased [Unknown]
  - Haemorrhage [Unknown]
